FAERS Safety Report 9131411 (Version 1)
Quarter: 2013Q1

REPORT INFORMATION
  Report Type: Spontaneous
  Country: US (occurrence: US)
  Receive Date: 20130301
  Receipt Date: 20130301
  Transmission Date: 20140127
  Serious: Yes (Other)
  Sender: FDA-Public Use
  Company Number: US-BAYER-2013-023769

PATIENT
  Age: 36 Year
  Sex: Female

DRUGS (6)
  1. YASMIN [Suspect]
  2. ADDERALL XR [Concomitant]
  3. IMITREX [Concomitant]
  4. LASIX [Concomitant]
     Indication: OEDEMA
  5. VASOTEC [Concomitant]
     Indication: OEDEMA
  6. ANTIBIOTICS [Concomitant]

REACTIONS (1)
  - Pulmonary embolism [None]
